FAERS Safety Report 4360714-9 (Version None)
Quarter: 2004Q2

REPORT INFORMATION
  Report Type: 
  Country: None (occurrence: None)
  Receive Date: 20040514
  Receipt Date: 20040505
  Transmission Date: 20050107
  Serious: Yes (Other)
  Sender: FDA-Public Use
  Company Number: HQWYE717405MAY04

PATIENT
  Sex: Female

DRUGS (1)
  1. AMIODARONE HCL [Suspect]
     Indication: CARDIAC DISORDER
     Dosage: 400 MG 1X PER 1 DAY
     Route: 048

REACTIONS (6)
  - BREAST CANCER [None]
  - CARCINOEMBRYONIC ANTIGEN INCREASED [None]
  - COMPUTERISED TOMOGRAM ABNORMAL [None]
  - LABORATORY TEST ABNORMAL [None]
  - METASTASES TO LUNG [None]
  - TUMOUR MARKER INCREASED [None]
